FAERS Safety Report 7419149-4 (Version None)
Quarter: 2011Q2

REPORT INFORMATION
  Report Type: 
  Country: None (occurrence: None)
  Receive Date: 20110415
  Receipt Date: 20110411
  Transmission Date: 20111010
  Serious: Yes (Death, Other)
  Sender: FDA-Public Use
  Company Number: US-GENZYME-FLUD-1001072

PATIENT
  Age: 37 Year

DRUGS (6)
  1. MELPHALAN HYDROCHLORIDE [Suspect]
     Indication: STEM CELL TRANSPLANT
  2. DECITABINE [Suspect]
     Indication: MYELODYSPLASTIC SYNDROME
     Dosage: 10 MG/M2, QDX10
     Route: 042
  3. FLUDARA [Suspect]
     Indication: STEM CELL TRANSPLANT
  4. FLUDARA [Suspect]
     Indication: MYELODYSPLASTIC SYNDROME
     Dosage: 30 MG/M2, QDX4
     Route: 065
  5. MELPHALAN HYDROCHLORIDE [Suspect]
     Indication: MYELODYSPLASTIC SYNDROME
     Dosage: 140 MG/M2, UNK
     Route: 065
  6. DECITABINE [Suspect]
     Dosage: 10 MG/M2, QDX10
     Route: 042

REACTIONS (3)
  - NAUSEA [None]
  - ENGRAFT FAILURE [None]
  - DEATH [None]
